FAERS Safety Report 6372184-X (Version None)
Quarter: 2009Q3

REPORT INFORMATION
  Report Type: 
  Country: None (occurrence: None)
  Receive Date: 20090924
  Receipt Date: 20090918
  Transmission Date: 20100115
  Serious: Yes (Other)
  Sender: FDA-Public Use
  Company Number: US-JNJCH-2009025221

PATIENT
  Age: 44 Year
  Sex: Male
  Weight: 68 kg

DRUGS (3)
  1. LISTERINE WHITENING PRE-BRUSH RINSE [Suspect]
     Indication: DENTAL CARE
     Dosage: TEXT:UNSPECIFIED
     Route: 048
     Dates: start: 20090914, end: 20090918
  2. TRAMADOL HCL [Concomitant]
     Indication: PAIN
     Dosage: TEXT:WHEN NEEDED
     Route: 065
  3. ACETYLSALICYLIC ACID SRT [Concomitant]
     Indication: CARDIAC DISORDER
     Dosage: TEXT:WHEN NEEDED
     Route: 065

REACTIONS (4)
  - BURNING SENSATION [None]
  - GINGIVAL DISORDER [None]
  - ORAL MUCOSAL EXFOLIATION [None]
  - ORAL PAIN [None]
